FAERS Safety Report 15601581 (Version 2)
Quarter: 2018Q4

REPORT INFORMATION
  Report Type: Spontaneous
  Country: CZ (occurrence: CZ)
  Receive Date: 20181109
  Receipt Date: 20181127
  Transmission Date: 20190205
  Serious: Yes (Other)
  Sender: FDA-Public Use
  Company Number: PHHY2018CZ144150

PATIENT
  Age: 71 Year
  Sex: Female

DRUGS (2)
  1. PEMETREXED. [Suspect]
     Active Substance: PEMETREXED
     Indication: NON-SMALL CELL LUNG CANCER
     Dosage: UNK UNK, 3 CYCLIC
     Route: 042
  2. PEMETREXED. [Suspect]
     Active Substance: PEMETREXED
     Indication: LARGE CELL LUNG CANCER METASTATIC

REACTIONS (5)
  - Dizziness [Unknown]
  - Ocular discomfort [Unknown]
  - Disease progression [Unknown]
  - Leukopenia [Unknown]
  - Malignant neoplasm progression [Unknown]

NARRATIVE: CASE EVENT DATE: 201804
